FAERS Safety Report 12995822 (Version 2)
Quarter: 2017Q1

REPORT INFORMATION
  Report Type: Report from Study
  Country: CN (occurrence: CN)
  Receive Date: 20161202
  Receipt Date: 20170324
  Transmission Date: 20170428
  Serious: Yes (Other)
  Sender: FDA-Public Use
  Company Number: CN-OTSUKA-2016_028272

PATIENT
  Sex: Male

DRUGS (1)
  1. DECITABINE. [Suspect]
     Active Substance: DECITABINE
     Indication: MYELODYSPLASTIC SYNDROME
     Dosage: 50 MG, 1 IN 1 DAY
     Route: 042
     Dates: start: 20160402, end: 20160724

REACTIONS (2)
  - Leukaemia [Unknown]
  - Drug ineffective [Unknown]
